FAERS Safety Report 4680980-X (Version None)
Quarter: 2005Q2

REPORT INFORMATION
  Report Type: 
  Country: None (occurrence: None)
  Receive Date: 20050601
  Receipt Date: 20050601
  Transmission Date: 20051028
  Serious: Yes (Hospitalization)
  Sender: FDA-Public Use
  Company Number: None

PATIENT
  Age: 79 Year
  Sex: Male
  Weight: 94.8018 kg

DRUGS (2)
  1. WARFARIN  2.5MG [Suspect]
     Indication: ATRIAL FIBRILLATION
     Dosage: 3.75MG  DAILY ORAL
     Route: 048
     Dates: start: 20040301, end: 20050525
  2. WARFARIN  2.5MG [Suspect]
     Indication: ATRIAL FLUTTER
     Dosage: 3.75MG  DAILY ORAL
     Route: 048
     Dates: start: 20040301, end: 20050525

REACTIONS (9)
  - ANOREXIA [None]
  - ASTHENIA [None]
  - COAGULOPATHY [None]
  - FATIGUE [None]
  - GASTROINTESTINAL HAEMORRHAGE [None]
  - INTERNATIONAL NORMALISED RATIO INCREASED [None]
  - MELAENA [None]
  - NAUSEA [None]
  - WEIGHT DECREASED [None]
